FAERS Safety Report 18734661 (Version 2)
Quarter: 2021Q1

REPORT INFORMATION
  Report Type: Spontaneous
  Country: IN (occurrence: IN)
  Receive Date: 20210113
  Receipt Date: 20210217
  Transmission Date: 20210419
  Serious: Yes (Hospitalization, Other)
  Sender: FDA-Public Use
  Company Number: IN-ALVOGEN-2021-ALVOGEN-116072

PATIENT
  Weight: 3.2 kg

DRUGS (2)
  1. ROPIVACAINE HYDROCHLORIDE. [Suspect]
     Active Substance: ROPIVACAINE HYDROCHLORIDE
     Indication: PRODUCT USED FOR UNKNOWN INDICATION
     Dosage: 0.2%, 10 CC ; EPIDURAL CATHETER WAS INSERTED USING 18G NEEDLE IN L3/L4 SPACE
     Route: 064
  2. FENTANYL. [Suspect]
     Active Substance: FENTANYL
     Indication: PRODUCT USED FOR UNKNOWN INDICATION
     Dosage: 2 MICROG/ML; EPIDURAL CATHETER WAS INSERTED USING 18G NEEDLE IN L3/L4 SPACE
     Route: 064

REACTIONS (4)
  - Foetal exposure during pregnancy [Unknown]
  - Bradycardia foetal [Recovered/Resolved]
  - Foetal distress syndrome [Recovered/Resolved]
  - Accidental exposure to product [Recovered/Resolved]
